FAERS Safety Report 7006556-7 (Version None)
Quarter: 2010Q3

REPORT INFORMATION
  Report Type: 
  Country: None (occurrence: None)
  Receive Date: 20100921
  Receipt Date: 20091125
  Transmission Date: 20110219
  Serious: No
  Sender: FDA-Public Use
  Company Number: US-WYE-H10459509

PATIENT
  Sex: Male
  Weight: 30.6 kg

DRUGS (3)
  1. XYNTHA [Suspect]
     Indication: FACTOR VIII DEFICIENCY
     Dosage: 50 UNIT/KG EVERY 2 DAY;  CUMULATIVE DOSE TO EVENT: 1325 UNIT/KG
     Route: 042
     Dates: start: 20090612, end: 20090805
  2. FLOVENT [Concomitant]
  3. KEPPRA [Concomitant]

REACTIONS (4)
  - DYSPHONIA [None]
  - ERYTHEMA [None]
  - HYPERSENSITIVITY [None]
  - URTICARIA [None]
